FAERS Safety Report 4801773-6 (Version None)
Quarter: 2005Q4

REPORT INFORMATION
  Report Type: 
  Country: None (occurrence: None)
  Receive Date: 20051018
  Receipt Date: 20050913
  Transmission Date: 20060501
  Serious: Yes (Other)
  Sender: FDA-Public Use
  Company Number: JP-JNJFOC-20050803608

PATIENT
  Age: 53 Year
  Sex: Female

DRUGS (2)
  1. LEVAQUIN [Suspect]
     Indication: DRUG USE FOR UNKNOWN INDICATION
     Route: 048
     Dates: start: 20050121, end: 20050122
  2. MOTRIN [Concomitant]
     Route: 065

REACTIONS (8)
  - FLUSHING [None]
  - HEADACHE [None]
  - NEUROPATHY PERIPHERAL [None]
  - OCULAR HYPERAEMIA [None]
  - PARAESTHESIA [None]
  - RETINAL VEIN OCCLUSION [None]
  - URINE ABNORMALITY [None]
  - VISION BLURRED [None]
